FAERS Safety Report 7835250-5 (Version None)
Quarter: 2011Q4

REPORT INFORMATION
  Report Type: 
  Country: None (occurrence: None)
  Receive Date: 20111024
  Receipt Date: 20111014
  Transmission Date: 20120403
  Serious: Yes (Other)
  Sender: FDA-Public Use
  Company Number: US-ASTRAZENECA-2010SE53264

PATIENT
  Age: 51 Year
  Sex: Male

DRUGS (1)
  1. NEXIUM [Suspect]
     Route: 048

REACTIONS (6)
  - DYSPEPSIA [None]
  - ACROMEGALY [None]
  - DIABETES MELLITUS INADEQUATE CONTROL [None]
  - BRAIN NEOPLASM [None]
  - DRUG DOSE OMISSION [None]
  - HIATUS HERNIA [None]
